FAERS Safety Report 25737774 (Version 1)
Quarter: 2025Q3

REPORT INFORMATION
  Report Type: Spontaneous
  Country: US (occurrence: US)
  Receive Date: 20250828
  Receipt Date: 20250828
  Transmission Date: 20251021
  Serious: No
  Sender: COLLEGIUM PHARMACEUTICAL
  Company Number: US-COLLEGIUM PHARMACEUTICAL, INC.-20250602191

PATIENT

DRUGS (3)
  1. JORNAY PM EXTENDED-RELEASE [Suspect]
     Active Substance: METHYLPHENIDATE HYDROCHLORIDE
     Indication: Product used for unknown indication
     Route: 065
     Dates: start: 20250519
  2. LEXAPRO [Concomitant]
     Active Substance: ESCITALOPRAM OXALATE
     Indication: Anxiety
     Route: 065
  3. ONYDA XR [Concomitant]
     Active Substance: CLONIDINE HYDROCHLORIDE
     Indication: Autism spectrum disorder
     Route: 065

REACTIONS (3)
  - Sleep disorder [Recovered/Resolved]
  - Anxiety [Unknown]
  - Fear [Unknown]

NARRATIVE: CASE EVENT DATE: 20250501
